FAERS Safety Report 13532907 (Version 1)
Quarter: 2017Q2

REPORT INFORMATION
  Report Type: Spontaneous
  Country: US (occurrence: US)
  Receive Date: 20170510
  Receipt Date: 20170510
  Transmission Date: 20170830
  Serious: No
  Sender: FDA-Public Use
  Company Number: US-PERRIGO-16US019050

PATIENT
  Age: 65 Year
  Sex: Female
  Weight: 72.56 kg

DRUGS (2)
  1. MICONAZOLE 3 COMBINATION PACK [Suspect]
     Active Substance: MICONAZOLE NITRATE
     Indication: VULVOVAGINAL MYCOTIC INFECTION
     Dosage: 200 MG, QD
     Route: 067
     Dates: start: 20160801, end: 20160803
  2. MICONAZOLE 3 COMBINATION PACK [Suspect]
     Active Substance: MICONAZOLE NITRATE
     Indication: VULVOVAGINAL PRURITUS
     Dosage: 1 SMALL APPLICATION, PRN
     Route: 061
     Dates: start: 20160805, end: 20160807

REACTIONS (2)
  - Vulvovaginal pruritus [Not Recovered/Not Resolved]
  - Off label use [Recovered/Resolved]

NARRATIVE: CASE EVENT DATE: 20160801
